FAERS Safety Report 7498949-9 (Version None)
Quarter: 2011Q2

REPORT INFORMATION
  Report Type: 
  Country: None (occurrence: None)
  Receive Date: 20110524
  Receipt Date: 20110518
  Transmission Date: 20111010
  Serious: Yes (Death, Hospitalization)
  Sender: FDA-Public Use
  Company Number: US-SANOFI-AVENTIS-2011SA031179

PATIENT
  Age: 77 Year
  Sex: Female

DRUGS (10)
  1. LORAZEPAM [Concomitant]
  2. FUROSEMIDE [Concomitant]
  3. HERBAL PREPARATION [Concomitant]
  4. DOCUSATE [Concomitant]
  5. METOCLOPRAMIDE [Concomitant]
  6. LOVENOX [Suspect]
     Route: 065
  7. DEXAMETHASONE [Concomitant]
  8. OMEPRAZOLE [Concomitant]
  9. OXYCONTIN [Concomitant]
  10. FENTANYL [Concomitant]

REACTIONS (2)
  - DEATH [None]
  - MYOCARDIAL INFARCTION [None]
